FAERS Safety Report 7287484-9 (Version None)
Quarter: 2011Q1

REPORT INFORMATION
  Report Type: 
  Country: None (occurrence: None)
  Receive Date: 20110208
  Receipt Date: 20110208
  Transmission Date: 20110831
  Serious: No
  Sender: FDA-Public Use
  Company Number: None

PATIENT
  Age: 55 Year
  Sex: Female
  Weight: 88.905 kg

DRUGS (2)
  1. TOPAMAX [Suspect]
     Indication: MIGRAINE
     Dosage: 50MG TWICE DAILY ORAL
     Route: 048
     Dates: start: 20110101
  2. TOPAMAX [Suspect]
     Indication: MIGRAINE
     Dosage: 50MG TWICE DAILY ORAL
     Route: 048
     Dates: start: 20100101

REACTIONS (1)
  - BLEPHAROSPASM [None]
